FAERS Safety Report 6784997-0 (Version None)
Quarter: 2010Q2

REPORT INFORMATION
  Report Type: 
  Country: None (occurrence: None)
  Receive Date: 20100618
  Receipt Date: 20100604
  Transmission Date: 20101027
  Serious: Yes (Hospitalization)
  Sender: FDA-Public Use
  Company Number: 2009AL000412

PATIENT
  Age: 50 Year
  Sex: Male
  Weight: 73 kg

DRUGS (5)
  1. PRALATREXATE (PRALATREXATE) [Suspect]
     Indication: NON-SMALL CELL LUNG CANCER
     Dosage: 230 MG/M**2; QOW; IV
     Route: 042
     Dates: start: 20080623
  2. CYANOCOBALAMIN [Concomitant]
  3. FOLIC ACID [Concomitant]
  4. EPOETIN BETA [Concomitant]
  5. MEGESTROL ACETATE [Concomitant]

REACTIONS (1)
  - MUSCULOSKELETAL CHEST PAIN [None]
